FAERS Safety Report 7457424-8 (Version None)
Quarter: 2011Q2

REPORT INFORMATION
  Report Type: 
  Country: None (occurrence: None)
  Receive Date: 20110504
  Receipt Date: 20110426
  Transmission Date: 20111010
  Serious: Yes (Other)
  Sender: FDA-Public Use
  Company Number: PHHY2010MX48305

PATIENT
  Sex: Female

DRUGS (8)
  1. NORVASC [Concomitant]
  2. CAPTOPRIL [Concomitant]
  3. OMEPRAZOLE [Concomitant]
  4. ACLASTA [Suspect]
     Dosage: 1 INJECTION (5 MG/100ML) PER YEAR
     Route: 042
     Dates: start: 20090424
  5. WARFARIN [Concomitant]
  6. CALCIUM [Concomitant]
  7. TENORMIN [Concomitant]
  8. ATACAND [Concomitant]

REACTIONS (10)
  - BLOOD PRESSURE INCREASED [None]
  - EYE PRURITUS [None]
  - BLINDNESS [None]
  - PHOTOPSIA [None]
  - EYELID OEDEMA [None]
  - EYE IRRITATION [None]
  - RETINAL DISORDER [None]
  - BONE PAIN [None]
  - VISION BLURRED [None]
  - ARTHRALGIA [None]
